FAERS Safety Report 21036345 (Version 1)
Quarter: 2022Q3

REPORT INFORMATION
  Report Type: Spontaneous
  Country: ES (occurrence: ES)
  Receive Date: 20220702
  Receipt Date: 20220702
  Transmission Date: 20221026
  Serious: Yes (Other)
  Sender: FDA-Public Use
  Company Number: ES-AMGEN-ESPSP2022101803

PATIENT
  Age: 50 Year
  Sex: Female

DRUGS (5)
  1. IRINOTECAN [Suspect]
     Active Substance: IRINOTECAN
     Indication: Adenocarcinoma
     Dosage: UNK
     Route: 065
     Dates: start: 20200804
  2. FLUOROURACIL [Suspect]
     Active Substance: FLUOROURACIL
     Indication: Adenocarcinoma
     Dosage: UNK
     Route: 065
     Dates: start: 20180816
  3. LEUCOVORIN [Suspect]
     Active Substance: LEUCOVORIN
     Indication: Adenocarcinoma
     Dosage: UNK
     Route: 065
     Dates: start: 20180816
  4. VECTIBIX [Suspect]
     Active Substance: PANITUMUMAB
     Indication: Adenocarcinoma
     Dosage: UNK
     Route: 065
     Dates: start: 20200804
  5. VECTIBIX [Suspect]
     Active Substance: PANITUMUMAB
     Dosage: UNK
     Route: 065
     Dates: start: 20180816

REACTIONS (5)
  - Adenocarcinoma [Unknown]
  - Hypertransaminasaemia [Unknown]
  - Neuropathy peripheral [Unknown]
  - Staphylococcal infection [Unknown]
  - Therapy partial responder [Unknown]

NARRATIVE: CASE EVENT DATE: 20181001
